FAERS Safety Report 11684381 (Version 2)
Quarter: 2015Q4

REPORT INFORMATION
  Report Type: Spontaneous
  Country: AE (occurrence: AE)
  Receive Date: 20151029
  Receipt Date: 20151105
  Transmission Date: 20160304
  Serious: Yes (Life-Threatening)
  Sender: FDA-Public Use
  Company Number: PHHY2015AE140902

PATIENT
  Age: 35 Year
  Sex: Male
  Weight: 100 kg

DRUGS (1)
  1. EXFORGE [Suspect]
     Active Substance: AMLODIPINE BESYLATE\VALSARTAN
     Indication: HYPERTENSION
     Dosage: 10 MG (AS REPORTED), QD
     Route: 048
     Dates: start: 20110115, end: 20150416

REACTIONS (4)
  - Dyspnoea [Unknown]
  - Pulmonary oedema [Recovered/Resolved]
  - Ejection fraction decreased [Unknown]
  - Cardiomyopathy [Recovered/Resolved]

NARRATIVE: CASE EVENT DATE: 20150409
